FAERS Safety Report 10073804 (Version 1)
Quarter: 2014Q2

REPORT INFORMATION
  Report Type: Spontaneous
  Country: US (occurrence: US)
  Receive Date: 20140411
  Receipt Date: 20140411
  Transmission Date: 20141212
  Serious: Yes (Hospitalization)
  Sender: FDA-Public Use
  Company Number: US-JHP PHARMACEUTICALS, LLC-JHP201400150

PATIENT
  Age: 18 Year
  Sex: Female

DRUGS (4)
  1. KETALAR [Suspect]
     Indication: DRUG ABUSE
  2. CEPHALEXIN [Concomitant]
  3. KETOROLAC [Concomitant]
  4. HYDROCODONE / ACETAMINOPHEN [Concomitant]

REACTIONS (2)
  - Gallbladder disorder [Unknown]
  - Urinary tract inflammation [Not Recovered/Not Resolved]
